FAERS Safety Report 13016951 (Version 8)
Quarter: 2017Q2

REPORT INFORMATION
  Report Type: Spontaneous
  Country: US (occurrence: US)
  Receive Date: 20161212
  Receipt Date: 20170511
  Transmission Date: 20170830
  Serious: Yes (Congenital Anomaly, Other)
  Sender: FDA-Public Use
  Company Number: PHEH2016US032053

PATIENT
  Sex: Female

DRUGS (2)
  1. ZOFRAN [Suspect]
     Active Substance: ONDANSETRON HYDROCHLORIDE
     Indication: FOETAL EXPOSURE DURING PREGNANCY
     Route: 064
  2. ZOFRAN ODT [Suspect]
     Active Substance: ONDANSETRON HYDROCHLORIDE
     Indication: FOETAL EXPOSURE DURING PREGNANCY
     Dosage: MOTHER^S DOSE: 04 MG, BID
     Route: 064

REACTIONS (22)
  - Talipes [Unknown]
  - Cellulitis [Unknown]
  - Injury [Unknown]
  - Weight increased [Unknown]
  - Papule [Unknown]
  - Dermatitis atopic [Unknown]
  - Otitis media [Unknown]
  - Foot deformity [Unknown]
  - Nasal congestion [Unknown]
  - Asthenia [Unknown]
  - Joint range of motion decreased [Unknown]
  - Candida infection [Unknown]
  - Plagiocephaly [Unknown]
  - Upper respiratory tract infection [Unknown]
  - Fever neonatal [Unknown]
  - Eczema [Unknown]
  - Gastrooesophageal reflux disease [Unknown]
  - Torticollis [Unknown]
  - Diarrhoea neonatal [Unknown]
  - Foetal exposure during pregnancy [Unknown]
  - Skin hypopigmentation [Unknown]
  - Decreased appetite [Unknown]
